FAERS Safety Report 21443286 (Version 1)
Quarter: 2022Q4

REPORT INFORMATION
  Report Type: Spontaneous
  Country: US (occurrence: US)
  Receive Date: 20221012
  Receipt Date: 20221012
  Transmission Date: 20230113
  Serious: No
  Sender: FDA-Public Use
  Company Number: US-DECIPHERA PHARMACEUTICALS LLC-2022US000785

PATIENT
  Sex: Female

DRUGS (1)
  1. QINLOCK [Suspect]
     Active Substance: RIPRETINIB
     Indication: Gastrointestinal stromal tumour
     Dosage: 150 MILLIGRAM, QD (THREE TABLETS ONCE A DAY)
     Route: 048

REACTIONS (7)
  - Peripheral swelling [Unknown]
  - Blister [Unknown]
  - Decreased appetite [Unknown]
  - Asthenia [Unknown]
  - Alopecia [Unknown]
  - Weight decreased [Unknown]
  - Drug ineffective [Unknown]
